FAERS Safety Report 4719792-7 (Version None)
Quarter: 2005Q3

REPORT INFORMATION
  Report Type: 
  Country: None (occurrence: None)
  Receive Date: 20050721
  Receipt Date: 20041105
  Transmission Date: 20060218
  Serious: No
  Sender: FDA-Public Use
  Company Number: US-GLAXOSMITHKLINE-A0532847A

PATIENT
  Age: 68 Year
  Sex: Female

DRUGS (6)
  1. AVANDIA [Suspect]
     Dosage: 4MG PER DAY
     Route: 048
     Dates: start: 20041029
  2. GLUCOPHAGE XR [Concomitant]
  3. GLYBURIDE [Concomitant]
  4. ATENOLOL [Concomitant]
  5. HYDROCHLOROTHIAZIDE [Concomitant]
  6. LOTENSIN [Concomitant]

REACTIONS (3)
  - BACK PAIN [None]
  - CONSTIPATION [None]
  - FLATULENCE [None]
